FAERS Safety Report 9726327 (Version 1)
Quarter: 2013Q4

REPORT INFORMATION
  Report Type: Spontaneous
  Country: ZA (occurrence: ZA)
  Receive Date: 20131203
  Receipt Date: 20131203
  Transmission Date: 20140711
  Serious: Yes (Death, Hospitalization, Other)
  Sender: FDA-Public Use
  Company Number: ZA-PFIZER INC-2013339851

PATIENT
  Age: 55 Year
  Sex: Male

DRUGS (1)
  1. ZMAX [Suspect]
     Dosage: UNK
     Route: 048
     Dates: start: 201307

REACTIONS (3)
  - Death [Fatal]
  - Stevens-Johnson syndrome [Unknown]
  - Rash [Unknown]
